FAERS Safety Report 5084923-9 (Version None)
Quarter: 2006Q3

REPORT INFORMATION
  Report Type: 
  Country: None (occurrence: None)
  Receive Date: 20060815
  Receipt Date: 20060710
  Transmission Date: 20061208
  Serious: Yes (Death, Hospitalization)
  Sender: FDA-Public Use
  Company Number: 163-C5013-06070603

PATIENT
  Age: 62 Year
  Sex: Male
  Weight: 101.1975 kg

DRUGS (14)
  1. CC-5013 (LENALIDOMIDE) (CAPSULES) [Suspect]
     Indication: MULTIPLE MYELOMA
     Dosage: 15 MG, DAILY FOR 21 DAYS, ORAL
     Route: 048
     Dates: start: 20040308, end: 20060712
  2. LEXAPRO (ESCITALOPRAM OXALATE) (TABLETS) [Concomitant]
  3. CELEBREX [Concomitant]
  4. NEURONTIN [Concomitant]
  5. MULTIVITAMIN [Concomitant]
  6. ZOMETA [Concomitant]
  7. SENNA (SENNA) [Concomitant]
  8. FLORINEF [Concomitant]
  9. PATANOL [Concomitant]
  10. HYDROCORTISONE SODIUM SUCCINATE (HYDROCORTISONE SODIUM SUCCINATE) (INJ [Concomitant]
  11. IMODIUM [Concomitant]
  12. MAGNESIUM (MAGNESIUM) [Concomitant]
  13. SIMETHICONE (DIMETICONE, ACTIVATED) [Concomitant]
  14. VALTREX [Concomitant]

REACTIONS (7)
  - ASTHENIA [None]
  - BONE PAIN [None]
  - CHILLS [None]
  - FATIGUE [None]
  - HAEMATOCRIT DECREASED [None]
  - HAEMOGLOBIN DECREASED [None]
  - PYREXIA [None]
